FAERS Safety Report 10526789 (Version 1)
Quarter: 2014Q4

REPORT INFORMATION
  Report Type: Spontaneous
  Country: FR (occurrence: FR)
  Receive Date: 20141020
  Receipt Date: 20141020
  Transmission Date: 20150528
  Serious: Yes (Other)
  Sender: FDA-Public Use
  Company Number: FR-ACCORD-026477

PATIENT
  Age: 13 Year
  Sex: Female

DRUGS (5)
  1. AERIUS [Concomitant]
     Active Substance: DESLORATADINE
     Indication: ASTHMA
  2. VENTOLIN [Concomitant]
     Active Substance: ALBUTEROL SULFATE
     Indication: ASTHMA
  3. AVAMY [Concomitant]
     Indication: ASTHMA
  4. SERETIDE [Concomitant]
     Active Substance: FLUTICASONE FUROATE\SALMETEROL XINAFOATE
     Indication: ASTHMA
     Dosage: 2 PUFFS MORNING AND EVENING.
  5. MONTELUKAST [Suspect]
     Active Substance: MONTELUKAST SODIUM
     Indication: ASTHMA
     Dosage: INDICATION:PERSISTENT ALLERGIC ASTHMA

REACTIONS (3)
  - Product substitution issue [Unknown]
  - Contusion [Recovering/Resolving]
  - Ecchymosis [Recovering/Resolving]

NARRATIVE: CASE EVENT DATE: 201307
